FAERS Safety Report 10952171 (Version 1)
Quarter: 2015Q1

REPORT INFORMATION
  Report Type: Spontaneous
  Country: US (occurrence: None)
  Receive Date: 20150324
  Receipt Date: 20150324
  Transmission Date: 20150721
  Serious: No
  Sender: FDA-Public Use
  Company Number: None

PATIENT
  Age: 62 Year
  Sex: Female
  Weight: 42.18 kg

DRUGS (2)
  1. ITRACONAZOLE 100MG MYLAN [Suspect]
     Active Substance: ITRACONAZOLE
     Indication: BRONCHIECTASIS
     Dosage: 200MG (100MG 2 TABS) BID PO
     Route: 048
     Dates: start: 201412
  2. ITRACONAZOLE 100MG MYLAN [Suspect]
     Active Substance: ITRACONAZOLE
     Indication: ASPERGILLUS INFECTION
     Dosage: 200MG (100MG 2 TABS) BID PO
     Route: 048
     Dates: start: 201412

REACTIONS (3)
  - Product substitution issue [None]
  - Sensation of foreign body [None]
  - Product size issue [None]

NARRATIVE: CASE EVENT DATE: 20141218
